FAERS Safety Report 13716098 (Version 1)
Quarter: 2017Q3

REPORT INFORMATION
  Report Type: Spontaneous
  Country: IN (occurrence: IN)
  Receive Date: 20170705
  Receipt Date: 20170705
  Transmission Date: 20171127
  Serious: Yes (Other)
  Sender: FDA-Public Use
  Company Number: IN-SUN PHARMACEUTICAL INDUSTRIES LTD-2017R1-138162

PATIENT
  Age: 47 Year
  Sex: Male

DRUGS (2)
  1. DIVALPROEX [Concomitant]
     Active Substance: DIVALPROEX SODIUM
     Indication: MAJOR DEPRESSION
     Dosage: 250 MG, DAILY
     Route: 065
  2. BACLOFEN. [Suspect]
     Active Substance: BACLOFEN
     Indication: ALCOHOLISM
     Dosage: 20 MG, DAILY
     Route: 065

REACTIONS (1)
  - Mania [Recovered/Resolved]
